FAERS Safety Report 17896526 (Version 3)
Quarter: 2021Q3

REPORT INFORMATION
  Report Type: Spontaneous
  Country: US (occurrence: US)
  Receive Date: 20200615
  Receipt Date: 20210824
  Transmission Date: 20211014
  Serious: Yes (Hospitalization, Disabling, Other)
  Sender: FDA-Public Use
  Company Number: US-SA-2020SA150925

PATIENT
  Age: 80 Year
  Sex: Male

DRUGS (1)
  1. ZANTAC 75 [Suspect]
     Active Substance: RANITIDINE HYDROCHLORIDE
     Dosage: 150 MG, BID
     Dates: end: 2019

REACTIONS (6)
  - Anxiety [Unknown]
  - Hepatic cancer [Unknown]
  - Injury [Unknown]
  - Hepatocellular carcinoma [Unknown]
  - Nausea [Unknown]
  - Hepatic mass [Unknown]

NARRATIVE: CASE EVENT DATE: 2019
